FAERS Safety Report 11792667 (Version 1)
Quarter: 2015Q4

REPORT INFORMATION
  Report Type: Spontaneous
  Country: DE (occurrence: DE)
  Receive Date: 20151202
  Receipt Date: 20151202
  Transmission Date: 20160305
  Serious: Yes (Hospitalization, Other)
  Sender: FDA-Public Use
  Company Number: DE-ABBVIE-15K-062-1494350-00

PATIENT
  Age: 62 Year
  Sex: Male
  Weight: 70 kg

DRUGS (2)
  1. HUMIRA [Suspect]
     Active Substance: ADALIMUMAB
     Indication: COLITIS ULCERATIVE
  2. HUMIRA [Suspect]
     Active Substance: ADALIMUMAB
     Indication: CROHN^S DISEASE
     Route: 058
     Dates: start: 20150116, end: 20151023

REACTIONS (9)
  - Bone cancer [Unknown]
  - Lymphoma [Unknown]
  - Nerve compression [Not Recovered/Not Resolved]
  - Neoplasm skin [Unknown]
  - Paraneoplastic syndrome [Not Recovered/Not Resolved]
  - Psoriasis [Unknown]
  - Lung carcinoma cell type unspecified stage IV [Unknown]
  - Paraesthesia [Unknown]
  - Malignant peritoneal neoplasm [Unknown]

NARRATIVE: CASE EVENT DATE: 2015
